FAERS Safety Report 8512885-8 (Version None)
Quarter: 2012Q3

REPORT INFORMATION
  Report Type: 
  Country: None (occurrence: None)
  Receive Date: 20120716
  Receipt Date: 20120710
  Transmission Date: 20120928
  Serious: Yes (Other)
  Sender: FDA-Public Use
  Company Number: PHHY2012FR060308

PATIENT
  Age: 20 Year
  Sex: Male

DRUGS (7)
  1. CYCLOSPORINE [Interacting]
     Indication: IMMUNOSUPPRESSION
  2. RIFAMPICIN [Interacting]
  3. ETHAMBUTOL HYDROCHLORIDE [Concomitant]
  4. CYCLOSPORINE [Interacting]
     Indication: LIVER TRANSPLANT
  5. STREPTOMYCIN [Concomitant]
  6. PREDNISOLONE [Suspect]
     Indication: IMMUNOSUPPRESSION
  7. AZATHIOPRINE [Interacting]
     Indication: IMMUNOSUPPRESSION

REACTIONS (2)
  - LIVER TRANSPLANT REJECTION [None]
  - DRUG INTERACTION [None]
